FAERS Safety Report 8446433-8 (Version None)
Quarter: 2012Q2

REPORT INFORMATION
  Report Type: 
  Country: None (occurrence: None)
  Receive Date: 20120618
  Receipt Date: 20120327
  Transmission Date: 20120825
  Serious: Yes (Hospitalization, Other)
  Sender: FDA-Public Use
  Company Number: US-TEVA-330425USA

PATIENT
  Sex: Female
  Weight: 85 kg

DRUGS (16)
  1. ACTIQ [Suspect]
     Indication: RENAL OSTEODYSTROPHY
     Route: 002
     Dates: start: 20101001
  2. LEVETIRACETAM [Concomitant]
     Indication: CONVULSION
     Route: 048
  3. MIDIDRINE [Concomitant]
     Indication: BLOOD PRESSURE
  4. MOMETASONE FUROATE [Concomitant]
  5. CALCIUM CARBONATE [Concomitant]
     Indication: VITAMIN SUPPLEMENTATION
     Dosage: 2400 MICROGRAM;
     Route: 048
  6. LEVOTHYROXINE SODIUM [Concomitant]
     Indication: THYROID DISORDER
     Dosage: .5 MILLIGRAM;
     Route: 048
  7. NEPHROCAPS                         /01041101/ [Concomitant]
     Indication: DIALYSIS
  8. NYSTATIN [Concomitant]
  9. PRAVASTATIN [Concomitant]
  10. CEPHALEXIN [Concomitant]
     Indication: CONVULSION
     Route: 048
  11. VITAMIN D [Concomitant]
     Indication: VITAMIN SUPPLEMENTATION
     Route: 048
  12. GABAPENTIN [Concomitant]
     Indication: CONVULSION
     Dosage: 1200 MILLIGRAM;
     Route: 048
  13. ALBUTEROL [Concomitant]
  14. FERROUS SULFATE TAB [Concomitant]
     Indication: VITAMIN SUPPLEMENTATION
     Dosage: 135 MILLIGRAM;
     Route: 048
  15. LORAZEPAM [Concomitant]
     Indication: SLEEP DISORDER
     Route: 048
  16. ESOMEPRAZOLE MAGNESIUM [Concomitant]
     Route: 048

REACTIONS (4)
  - DRUG PRESCRIBING ERROR [None]
  - OFF LABEL USE [None]
  - PAIN [None]
  - HYPOTENSION [None]
